FAERS Safety Report 8239714-4 (Version None)
Quarter: 2012Q1

REPORT INFORMATION
  Report Type: 
  Country: None (occurrence: None)
  Receive Date: 20120328
  Receipt Date: 20120217
  Transmission Date: 20120608
  Serious: Yes (Hospitalization)
  Sender: FDA-Public Use
  Company Number: PHHY2012JP018511

PATIENT
  Age: 16 Year
  Sex: Male

DRUGS (1)
  1. DICLOFENAC SODIUM [Suspect]
     Indication: PYREXIA
     Dosage: 50 MG, UNK
     Route: 054

REACTIONS (16)
  - C-REACTIVE PROTEIN INCREASED [None]
  - RED BLOOD CELL COUNT DECREASED [None]
  - DECREASED APPETITE [None]
  - INTERFERON GAMMA LEVEL [None]
  - INTRAVASCULAR HAEMOLYSIS [None]
  - ANAEMIA [None]
  - FATIGUE [None]
  - BACK PAIN [None]
  - SERUM FERRITIN INCREASED [None]
  - LEUCINE AMINOPEPTIDASE INCREASED [None]
  - HAPTOGLOBIN DECREASED [None]
  - INTERLEUKIN LEVEL INCREASED [None]
  - OCULAR ICTERUS [None]
  - HAEMOGLOBINURIA [None]
  - JAUNDICE [None]
  - BLOOD PRESSURE DIASTOLIC DECREASED [None]
